FAERS Safety Report 17411043 (Version 4)
Quarter: 2020Q1

REPORT INFORMATION
  Report Type: Spontaneous
  Country: US (occurrence: US)
  Receive Date: 20200212
  Receipt Date: 20200324
  Transmission Date: 20200409
  Serious: Yes (Hospitalization)
  Sender: FDA-Public Use
  Company Number: US-CELGENEUS-USA-20200202111

PATIENT
  Age: 61 Year
  Sex: Female

DRUGS (2)
  1. REVLIMID [Suspect]
     Active Substance: LENALIDOMIDE
     Indication: MYELODYSPLASTIC SYNDROME
     Dosage: 10 MILLIGRAM
     Route: 048
     Dates: start: 201909
  2. REVLIMID [Suspect]
     Active Substance: LENALIDOMIDE
     Indication: REFRACTORY ANAEMIA WITH RINGED SIDEROBLASTS
     Dosage: 10 MILLIGRAM
     Route: 048
     Dates: start: 20200205, end: 20200207

REACTIONS (12)
  - Skin burning sensation [Unknown]
  - Throat irritation [Unknown]
  - Anaphylactic reaction [Recovered/Resolved]
  - Peripheral swelling [Unknown]
  - Vulvovaginal burning sensation [Unknown]
  - Amnesia [Unknown]
  - Skin discolouration [Unknown]
  - Eye swelling [Unknown]
  - Skin exfoliation [Unknown]
  - Renal failure [Unknown]
  - Anorectal discomfort [Unknown]
  - Paraesthesia [Unknown]

NARRATIVE: CASE EVENT DATE: 20200207
